FAERS Safety Report 13630734 (Version 1)
Quarter: 2017Q2

REPORT INFORMATION
  Report Type: Spontaneous
  Country: US (occurrence: US)
  Receive Date: 20170531
  Receipt Date: 20170531
  Transmission Date: 20170830
  Serious: No
  Sender: FDA-Public Use
  Company Number: US-ASTELLAS-1325447

PATIENT
  Sex: Male
  Weight: 47.67 kg

DRUGS (12)
  1. TARCEVA [Suspect]
     Active Substance: ERLOTINIB HYDROCHLORIDE
     Indication: LUNG NEOPLASM MALIGNANT
     Route: 048
     Dates: start: 20131012, end: 20140530
  2. TARCEVA [Suspect]
     Active Substance: ERLOTINIB HYDROCHLORIDE
     Route: 048
     Dates: start: 20150126, end: 20150324
  3. MEGACE [Concomitant]
     Active Substance: MEGESTROL ACETATE
     Route: 048
  4. FUROSEMIDE. [Concomitant]
     Active Substance: FUROSEMIDE
  5. TAXOL [Concomitant]
     Active Substance: PACLITAXEL
  6. TARCEVA [Suspect]
     Active Substance: ERLOTINIB HYDROCHLORIDE
     Route: 048
     Dates: start: 20150714
  7. TYLENOL [Concomitant]
     Active Substance: ACETAMINOPHEN
  8. AVODART [Concomitant]
     Active Substance: DUTASTERIDE
     Route: 065
  9. HYDROXYZINE HYDROCHLORIDE. [Concomitant]
     Active Substance: HYDROXYZINE HYDROCHLORIDE
     Route: 065
  10. NEXIUM [Concomitant]
     Active Substance: ESOMEPRAZOLE MAGNESIUM
  11. CARBOPLATIN. [Concomitant]
     Active Substance: CARBOPLATIN
  12. TAMSULOSIN [Concomitant]
     Active Substance: TAMSULOSIN
     Route: 065

REACTIONS (14)
  - Amnesia [Unknown]
  - Fall [Unknown]
  - Rash papular [Unknown]
  - Fatigue [Unknown]
  - Failure to thrive [Unknown]
  - Rash generalised [Unknown]
  - Rash [Recovering/Resolving]
  - Stomatitis [Unknown]
  - Muscular weakness [Unknown]
  - Pruritus [Not Recovered/Not Resolved]
  - Mental impairment [Unknown]
  - Headache [Unknown]
  - Balance disorder [Unknown]
  - Swelling face [Unknown]
